FAERS Safety Report 12061138 (Version 1)
Quarter: 2016Q1

REPORT INFORMATION
  Report Type: Spontaneous
  Country: US (occurrence: US)
  Receive Date: 20160210
  Receipt Date: 20160210
  Transmission Date: 20160526
  Serious: No
  Sender: FDA-Public Use
  Company Number: US-RISING PHARMACEUTICALS, INC.-2015RIS00104

PATIENT
  Age: 15 Year
  Sex: Male
  Weight: 69.84 kg

DRUGS (2)
  1. CIPROFLOXACIN. [Suspect]
     Active Substance: CIPROFLOXACIN
     Indication: CONJUNCTIVITIS
     Dosage: 1 GTT, 4X/DAY
     Route: 047
     Dates: start: 20150629, end: 20150703
  2. CIPROFLOXACIN. [Suspect]
     Active Substance: CIPROFLOXACIN
     Dosage: 1 DOSAGE UNITS, ONCE
     Route: 047
     Dates: start: 20150704, end: 20150704

REACTIONS (4)
  - Eyelid oedema [Recovering/Resolving]
  - Eye infection [Unknown]
  - Rash papular [Recovering/Resolving]
  - Eye discharge [Unknown]

NARRATIVE: CASE EVENT DATE: 20150702
